FAERS Safety Report 7543422-2 (Version None)
Quarter: 2011Q2

REPORT INFORMATION
  Report Type: 
  Country: None (occurrence: None)
  Receive Date: 20110613
  Receipt Date: 20110608
  Transmission Date: 20111010
  Serious: Yes (Disabling)
  Sender: FDA-Public Use
  Company Number: JP-B.I. PHARMACEUTICALS,INC./RIDGEFIELD-2011-BP-14923NB

PATIENT
  Age: 80 Year
  Sex: Male

DRUGS (2)
  1. PRADAXA [Suspect]
     Route: 048
     Dates: start: 20110420
  2. PRADAXA [Suspect]
     Indication: EMBOLIC STROKE
     Dosage: 300 MG
     Route: 048
     Dates: start: 20110415, end: 20110417

REACTIONS (1)
  - CEREBRAL INFARCTION [None]
